FAERS Safety Report 9184905 (Version 2)
Quarter: 2013Q3

REPORT INFORMATION
  Report Type: Spontaneous
  Country: US (occurrence: US)
  Receive Date: 20130325
  Receipt Date: 20130702
  Transmission Date: 20140515
  Serious: Yes (Life-Threatening, Hospitalization, Other)
  Sender: FDA-Public Use
  Company Number: US-FRI-1000043556

PATIENT
  Age: 58 Year
  Sex: Female
  Weight: 70.9 kg

DRUGS (4)
  1. VIIBRYD [Suspect]
     Indication: CRYING
     Dosage: 10-20MG
     Route: 048
     Dates: start: 20120928, end: 20121029
  2. SPIRONOLACTONE [Concomitant]
     Indication: HYPERTENSION
  3. CALAN [Concomitant]
     Indication: HYPERTENSION
  4. NEXIUM [Concomitant]
     Indication: GASTROOESOPHAGEAL REFLUX DISEASE
     Dosage: LOW DOSE
     Dates: start: 20120928, end: 201302

REACTIONS (21)
  - Serotonin syndrome [Recovered/Resolved]
  - Chest pain [Recovered/Resolved]
  - Paraesthesia [Recovered/Resolved]
  - Aphasia [Recovered/Resolved]
  - Aphasia [Recovered/Resolved]
  - Activities of daily living impaired [Recovered/Resolved]
  - Tremor [Recovered/Resolved]
  - Crying [Recovered/Resolved]
  - Hypotension [Recovered/Resolved]
  - Body temperature increased [Recovered/Resolved]
  - Aphasia [Recovered/Resolved]
  - Feeling abnormal [Recovered/Resolved]
  - Pain [Recovered/Resolved]
  - Off label use [Recovered/Resolved]
  - Hiatus hernia [Recovered/Resolved]
  - Cough [Recovered/Resolved]
  - Laryngospasm [Recovered/Resolved]
  - Dyspnoea [Recovered/Resolved]
  - Sleep paralysis [Recovered/Resolved]
  - Memory impairment [Recovering/Resolving]
  - Abnormal dreams [Recovered/Resolved]
